FAERS Safety Report 12981173 (Version 1)
Quarter: 2016Q4

REPORT INFORMATION
  Report Type: Spontaneous
  Country: US (occurrence: US)
  Receive Date: 20161129
  Receipt Date: 20161129
  Transmission Date: 20170207
  Serious: No
  Sender: FDA-Public Use
  Company Number: US-AUROBINDO-AUR-APU-2015-06284

PATIENT
  Age: 74 Year
  Sex: Male

DRUGS (2)
  1. TENORETIC [Concomitant]
     Active Substance: ATENOLOL\CHLORTHALIDONE
     Indication: HYPERTENSION
     Dosage: ONE AND HALF TABLET A DAY
     Route: 065
  2. LOSARTAN POTASSIUM TABLETS USP 100MG [Suspect]
     Active Substance: LOSARTAN POTASSIUM
     Indication: HYPERTENSION
     Dosage: 100 MG, ONCE A DAY
     Route: 065
     Dates: start: 20150619, end: 20150710

REACTIONS (3)
  - Swelling [Recovered/Resolved]
  - Asthenia [Recovered/Resolved]
  - Myalgia [Recovered/Resolved]

NARRATIVE: CASE EVENT DATE: 20150709
